FAERS Safety Report 21702567 (Version 2)
Quarter: 2022Q4

REPORT INFORMATION
  Report Type: Spontaneous
  Country: US (occurrence: US)
  Receive Date: 20221208
  Receipt Date: 20221214
  Transmission Date: 20230112
  Serious: No
  Sender: FDA-Public Use
  Company Number: US-UNITED THERAPEUTICS-UNT-2022-028653

PATIENT
  Sex: Male

DRUGS (3)
  1. TYVASO [Suspect]
     Active Substance: TREPROSTINIL
     Indication: Pulmonary arterial hypertension
     Dosage: UNK
     Dates: start: 20221112
  2. TYVASO [Suspect]
     Active Substance: TREPROSTINIL
     Dosage: 36 ?G, QID
     Dates: start: 202211, end: 2022
  3. TYVASO [Suspect]
     Active Substance: TREPROSTINIL
     Dosage: 42 ?G, QID
     Dates: start: 2022, end: 2022

REACTIONS (3)
  - Cough [Unknown]
  - Muscle strain [Unknown]
  - Dyspnoea [Not Recovered/Not Resolved]

NARRATIVE: CASE EVENT DATE: 20220101
